FAERS Safety Report 9761102 (Version 1)
Quarter: 2013Q4

REPORT INFORMATION
  Report Type: Spontaneous
  Country: US (occurrence: US)
  Receive Date: 20131216
  Receipt Date: 20131216
  Transmission Date: 20140711
  Serious: No
  Sender: FDA-Public Use
  Company Number: US-BIOGENIDEC-2013BI104914

PATIENT
  Age: 67 Year
  Sex: Female

DRUGS (1)
  1. TECFIDERA [Suspect]
     Indication: MULTIPLE SCLEROSIS
     Route: 048
     Dates: start: 201304

REACTIONS (9)
  - Pruritus [Unknown]
  - Rash [Unknown]
  - Erythema [Recovered/Resolved]
  - Burning sensation [Not Recovered/Not Resolved]
  - Flushing [Unknown]
  - Rash macular [Unknown]
  - Hyperaesthesia [Unknown]
  - Insomnia [Not Recovered/Not Resolved]
  - Hypersensitivity [Not Recovered/Not Resolved]
